FAERS Safety Report 24592728 (Version 3)
Quarter: 2024Q4

REPORT INFORMATION
  Report Type: Spontaneous
  Country: FR (occurrence: FR)
  Receive Date: 20241108
  Receipt Date: 20241121
  Transmission Date: 20250115
  Serious: Yes (Death)
  Sender: NOVARTIS
  Company Number: FR-002147023-NVSC2024FR215938

PATIENT
  Age: 47 Year
  Sex: Male

DRUGS (9)
  1. MEKINIST [Suspect]
     Active Substance: TRAMETINIB DIMETHYL SULFOXIDE
     Indication: Malignant melanoma
     Dosage: 2 MG, QD
     Route: 048
     Dates: start: 20240331, end: 20241105
  2. TAFINLAR [Suspect]
     Active Substance: DABRAFENIB MESYLATE
     Indication: Malignant melanoma
     Dosage: 75 MG, QD (4X75MG)
     Route: 048
     Dates: start: 20240331, end: 20241105
  3. LEVETIRACETAM [Concomitant]
     Active Substance: LEVETIRACETAM
     Indication: Epilepsy
     Dosage: 500 MG (2 X 2 PER DAY)
     Route: 042
     Dates: end: 20241105
  4. MORPHINE [Concomitant]
     Active Substance: MORPHINE
     Indication: Pain
     Dosage: 1000 MG (7 MG PER HOUR BOLUS AND 17 MG EVERY 6 HOURS)
     Route: 042
     Dates: start: 20241023, end: 20241105
  5. SOLU-MEDROL [Concomitant]
     Active Substance: METHYLPREDNISOLONE SODIUM SUCCINATE
     Indication: Brain oedema
     Dosage: 80 MG, BID
     Route: 042
     Dates: start: 20241023, end: 20241105
  6. SERETIDE [Concomitant]
     Active Substance: FLUTICASONE PROPIONATE\SALMETEROL XINAFOATE
     Indication: Chronic obstructive pulmonary disease
     Dosage: UNK, BID(500 ?G / 50  ?G)
     Route: 055
     Dates: start: 20241023, end: 20241105
  7. MIDAZOLAM [Concomitant]
     Active Substance: MIDAZOLAM
     Indication: Sedation
     Dosage: 50 MG(ACCORDING TO MEDICAL ADVICE)
     Route: 042
     Dates: start: 20241023, end: 20241105
  8. Loxen [Concomitant]
     Indication: Hypertension
     Dosage: 20 MG, BID
     Route: 065
     Dates: start: 20241023, end: 20241105
  9. PRIMPERAN [Concomitant]
     Active Substance: METOCLOPRAMIDE HYDROCHLORIDE
     Indication: Nausea
     Dosage: UNK, QD(4X10MG)
     Route: 065

REACTIONS (2)
  - Malignant melanoma [Fatal]
  - Neoplasm malignant [Fatal]

NARRATIVE: CASE EVENT DATE: 20241105
